FAERS Safety Report 8274932-0 (Version None)
Quarter: 2012Q1

REPORT INFORMATION
  Report Type: 
  Country: None (occurrence: None)
  Receive Date: 20120309
  Receipt Date: 20120120
  Transmission Date: 20120608
  Serious: Yes (Other)
  Sender: FDA-Public Use
  Company Number: TH-2012-00065

PATIENT
  Age: 51 Year
  Sex: Male
  Weight: 83 kg

DRUGS (5)
  1. EGRIFTA [Suspect]
     Indication: LIPODYSTROPHY ACQUIRED
     Dosage: 1 IN 1 D, SUBCUTANEOUS
     Route: 058
  2. NORVIR [Concomitant]
  3. INTELENCE [Concomitant]
  4. ISENTRESS [Concomitant]
  5. PREZISTA [Concomitant]

REACTIONS (1)
  - MYOCARDIAL INFARCTION [None]
